FAERS Safety Report 9372344 (Version 1)
Quarter: 2013Q2

REPORT INFORMATION
  Report Type: Report from Study
  Country: US (occurrence: US)
  Receive Date: 20130627
  Receipt Date: 20130627
  Transmission Date: 20140414
  Serious: Yes (Death)
  Sender: FDA-Public Use
  Company Number: US-MYLANLABS-2012S1021264

PATIENT
  Age: 82 Year
  Sex: Male
  Weight: 69.4 kg

DRUGS (6)
  1. CLOZAPINE TABLETS [Suspect]
     Indication: DEMENTIA
     Dosage: 25MG-37.5MG
     Route: 048
     Dates: start: 20111030
  2. CLOZAPINE TABLETS [Suspect]
     Indication: HALLUCINATION
     Dosage: 25MG-37.5MG
     Route: 048
     Dates: start: 20111030
  3. CLOZAPINE TABLETS [Suspect]
     Indication: DELUSION
     Dosage: 25MG-37.5MG
     Route: 048
     Dates: start: 20111030
  4. CLOZAPINE TABLETS [Suspect]
     Indication: DEMENTIA
     Dosage: 25MG-37.5MG
     Route: 048
     Dates: end: 20120923
  5. CLOZAPINE TABLETS [Suspect]
     Indication: HALLUCINATION
     Dosage: 25MG-37.5MG
     Route: 048
     Dates: end: 20120923
  6. CLOZAPINE TABLETS [Suspect]
     Indication: DELUSION
     Dosage: 25MG-37.5MG
     Route: 048
     Dates: end: 20120923

REACTIONS (2)
  - Parkinson^s disease [Fatal]
  - Aspiration [Fatal]
